FAERS Safety Report 10146515 (Version 2)
Quarter: 2014Q2

REPORT INFORMATION
  Report Type: Spontaneous
  Country: US (occurrence: US)
  Receive Date: 20140501
  Receipt Date: 20140501
  Transmission Date: 20141212
  Serious: Yes (Other)
  Sender: FDA-Public Use
  Company Number: US-PURDUE-USA-2014-0113059

PATIENT
  Sex: Female

DRUGS (4)
  1. OXYCONTIN (NDA 22-272) [Suspect]
     Indication: BACK PAIN
     Dosage: 60 MG, Q8H
     Route: 048
  2. OXYCONTIN (NDA 22-272) [Suspect]
     Dosage: 40 MG, UNK
     Route: 048
  3. OXYCONTIN (NDA 22-272) [Suspect]
     Dosage: 20 MG, Q12H
     Route: 048
  4. OXYCODONE WITH APAP [Concomitant]
     Indication: BREAKTHROUGH PAIN
     Dosage: 10 MG, UNK
     Route: 048

REACTIONS (4)
  - Gastric ulcer [Unknown]
  - Hypermetabolism [Unknown]
  - Drug ineffective [Unknown]
  - Inadequate analgesia [Unknown]
